FAERS Safety Report 21301468 (Version 1)
Quarter: 2022Q3

REPORT INFORMATION
  Report Type: Spontaneous
  Country: GB (occurrence: GB)
  Receive Date: 20220907
  Receipt Date: 20220907
  Transmission Date: 20221027
  Serious: Yes (Hospitalization, Other)
  Sender: FDA-Public Use
  Company Number: GB-AUROBINDO-AUR-APL-2013-03232

PATIENT
  Age: 35 Year
  Sex: Female

DRUGS (5)
  1. ACETAMINOPHEN [Suspect]
     Active Substance: ACETAMINOPHEN
     Indication: Product used for unknown indication
     Dosage: 8 DOSAGE FORM (8 DF, TOTAL)
     Route: 048
     Dates: start: 20130315
  2. ACETAMINOPHEN [Suspect]
     Active Substance: ACETAMINOPHEN
     Dosage: 500 MILLIGRAM ( 8 TOTAL)
     Route: 048
     Dates: start: 20130315
  3. CYCLIZINE [Suspect]
     Active Substance: CYCLIZINE
     Indication: Product used for unknown indication
     Dosage: 8 DOSAGE FORM (8 DF,TOTAL)
     Route: 048
     Dates: start: 20130315
  4. CYCLIZINE [Suspect]
     Active Substance: CYCLIZINE
     Dosage: 50 MILLIGRAM (8 TOTAL)
     Route: 048
     Dates: start: 20130315
  5. LEVOTHYROXINE [Concomitant]
     Active Substance: LEVOTHYROXINE
     Indication: Hypothyroidism
     Dosage: UNK
     Route: 065

REACTIONS (2)
  - Cholinergic syndrome [Unknown]
  - Intentional overdose [Unknown]

NARRATIVE: CASE EVENT DATE: 20130315
